FAERS Safety Report 4500693-4 (Version None)
Quarter: 2004Q4

REPORT INFORMATION
  Report Type: 
  Country: None (occurrence: None)
  Receive Date: 20041112
  Receipt Date: 20041112
  Transmission Date: 20050328
  Serious: Yes (Other)
  Sender: FDA-Public Use
  Company Number: None

PATIENT
  Age: 71 Year
  Sex: Female
  Weight: 143.5 kg

DRUGS (7)
  1. DIGITEK 0.25 MG (BERTEK PHA) [Suspect]
     Indication: ATRIAL FIBRILLATION
     Dosage: ONE TAB PO QD
     Route: 048
     Dates: start: 20041020
  2. DIGITEK 0.25 MG (BERTEK PHA) [Suspect]
     Indication: CONGESTIVE CARDIOMYOPATHY
     Dosage: ONE TAB PO QD
     Route: 048
     Dates: start: 20041020
  3. WARFARIN [Concomitant]
  4. CARDIZEM CD [Concomitant]
  5. ENALAPRIL [Concomitant]
  6. ECOTRIN [Concomitant]
  7. PREVACID [Concomitant]

REACTIONS (2)
  - NAUSEA [None]
  - THERAPEUTIC AGENT TOXICITY [None]
